FAERS Safety Report 9415194 (Version 4)
Quarter: 2016Q4

REPORT INFORMATION
  Report Type: Spontaneous
  Country: US (occurrence: US)
  Receive Date: 20130723
  Receipt Date: 20161026
  Transmission Date: 20170207
  Serious: Yes (Hospitalization, Other)
  Sender: FDA-Public Use
  Company Number: US-009507513-1012USA01313

PATIENT
  Sex: Female
  Weight: 77.11 kg

DRUGS (3)
  1. FOSAMAX [Suspect]
     Active Substance: ALENDRONATE SODIUM
     Indication: OSTEOPOROSIS
     Dosage: 70 MG, QW
     Route: 048
     Dates: start: 1997, end: 200905
  2. BONIVA [Suspect]
     Active Substance: IBANDRONATE SODIUM
     Indication: OSTEOPOROSIS
     Dosage: 150 MG, QM
     Route: 048
     Dates: end: 20091221
  3. FOSAMAX [Suspect]
     Active Substance: ALENDRONATE SODIUM
     Indication: OSTEOPOROSIS
     Dosage: 70 MG, QW
     Route: 048
     Dates: start: 20080306, end: 200804

REACTIONS (74)
  - Fracture delayed union [Unknown]
  - Breast disorder [Unknown]
  - Low turnover osteopathy [Unknown]
  - Intermittent claudication [Unknown]
  - Biopsy breast [Unknown]
  - Cholecystitis [Unknown]
  - Adverse drug reaction [Unknown]
  - Renal failure [Unknown]
  - Chronic obstructive pulmonary disease [Unknown]
  - Lymphoedema [Unknown]
  - Carpal tunnel decompression [Unknown]
  - Cardiac murmur [Unknown]
  - Limb operation [Unknown]
  - Hand fracture [Unknown]
  - Alopecia [Unknown]
  - Arthralgia [Unknown]
  - Osteoarthritis [Unknown]
  - Femur fracture [Recovered/Resolved]
  - Dizziness [Unknown]
  - Tongue geographic [Unknown]
  - Tooth disorder [Unknown]
  - Road traffic accident [Unknown]
  - Burn oral cavity [Unknown]
  - Tuberculosis [Unknown]
  - Pelvic fracture [Unknown]
  - Limb discomfort [Recovering/Resolving]
  - Gastritis [Unknown]
  - Cholelithiasis [Unknown]
  - Hyperlipidaemia [Unknown]
  - Biliary colic [Unknown]
  - Spinal disorder [Unknown]
  - Hypothyroidism [Unknown]
  - Pulmonary mass [Unknown]
  - Depression [Not Recovered/Not Resolved]
  - Vitamin D decreased [Unknown]
  - Cardiac disorder [Unknown]
  - Uterine dilation and curettage [Unknown]
  - Fall [Unknown]
  - Electrocardiogram abnormal [Unknown]
  - Restless legs syndrome [Unknown]
  - Carotid artery stenosis [Unknown]
  - Ventricular extrasystoles [Unknown]
  - Blood parathyroid hormone increased [Unknown]
  - Burn oral cavity [Unknown]
  - Sensitivity of teeth [Unknown]
  - Mediastinal effusion [Unknown]
  - Limb asymmetry [Unknown]
  - Fracture nonunion [Recovered/Resolved]
  - Palpitations [Unknown]
  - Spinal column stenosis [Unknown]
  - Synovial cyst [Unknown]
  - Basal cell carcinoma [Unknown]
  - Blood thyroid stimulating hormone decreased [Unknown]
  - Asthma [Unknown]
  - Cataract [Unknown]
  - Granuloma [Unknown]
  - Aortic disorder [Unknown]
  - Bone loss [Unknown]
  - Autoimmune disorder [Unknown]
  - Seasonal allergy [Unknown]
  - Occult blood positive [Unknown]
  - Dyspnoea exertional [Unknown]
  - Asthma [Unknown]
  - Treatment noncompliance [Unknown]
  - Dry mouth [Unknown]
  - Bronchitis [Unknown]
  - Pain in extremity [Unknown]
  - Fall [Unknown]
  - Peripheral venous disease [Unknown]
  - Adverse drug reaction [Unknown]
  - Anxiety [Unknown]
  - Tooth disorder [Unknown]
  - Tendon sheath incision [Unknown]
  - Musculoskeletal discomfort [Recovering/Resolving]

NARRATIVE: CASE EVENT DATE: 1997
